FAERS Safety Report 17999765 (Version 1)
Quarter: 2020Q3

REPORT INFORMATION
  Report Type: Spontaneous
  Country: US (occurrence: US)
  Receive Date: 20200709
  Receipt Date: 20200709
  Transmission Date: 20201103
  Serious: No
  Sender: FDA-Public Use
  Company Number: US-JNJFOC-20200706034

PATIENT
  Age: 29 Year
  Sex: Male
  Weight: 108.96 kg

DRUGS (1)
  1. MENS ROGAINE EXTRA STRENGTH [Suspect]
     Active Substance: MINOXIDIL
     Indication: PRODUCT USED FOR UNKNOWN INDICATION
     Route: 061
     Dates: start: 202006, end: 20200701

REACTIONS (1)
  - Application site irritation [Unknown]

NARRATIVE: CASE EVENT DATE: 202006
